FAERS Safety Report 17081236 (Version 1)
Quarter: 2019Q4

REPORT INFORMATION
  Report Type: Spontaneous
  Country: US (occurrence: US)
  Receive Date: 20191126
  Receipt Date: 20191126
  Transmission Date: 20200122
  Serious: Yes (Hospitalization)
  Sender: FDA-Public Use
  Company Number: None

PATIENT
  Age: 52 Year
  Sex: Male
  Weight: 90 kg

DRUGS (9)
  1. AMLODIPINE [Concomitant]
     Active Substance: AMLODIPINE BESYLATE
  2. BUPROPION. [Concomitant]
     Active Substance: BUPROPION
  3. LOSARTAN. [Concomitant]
     Active Substance: LOSARTAN
  4. ATORVASTATIN [Concomitant]
     Active Substance: ATORVASTATIN
  5. RIVAROXABAN [Suspect]
     Active Substance: RIVAROXABAN
     Indication: DEEP VEIN THROMBOSIS
     Route: 048
     Dates: end: 20190906
  6. NEURONTIN [Concomitant]
     Active Substance: GABAPENTIN
  7. DIAZEPAM. [Concomitant]
     Active Substance: DIAZEPAM
  8. QUETIAPINE. [Concomitant]
     Active Substance: QUETIAPINE
  9. RISPERIDONE. [Concomitant]
     Active Substance: RISPERIDONE

REACTIONS (7)
  - Haematemesis [None]
  - Tongue discolouration [None]
  - Epistaxis [None]
  - Rectal haemorrhage [None]
  - Pallor [None]
  - Dizziness [None]
  - Blood pressure decreased [None]

NARRATIVE: CASE EVENT DATE: 20190906
